APPROVED DRUG PRODUCT: METOCLOPRAMIDE HYDROCHLORIDE
Active Ingredient: METOCLOPRAMIDE HYDROCHLORIDE
Strength: EQ 10MG BASE
Dosage Form/Route: TABLET;ORAL
Application: A077878 | Product #002 | TE Code: AB
Applicant: STRIDES PHARMA INTERNATIONAL AG
Approved: Aug 28, 2006 | RLD: No | RS: No | Type: RX